FAERS Safety Report 4704259-2 (Version None)
Quarter: 2005Q2

REPORT INFORMATION
  Report Type: 
  Country: None (occurrence: None)
  Receive Date: 20050629
  Receipt Date: 20050616
  Transmission Date: 20051028
  Serious: Yes (Life-Threatening, Hospitalization)
  Sender: FDA-Public Use
  Company Number: US015468

PATIENT
  Sex: Female

DRUGS (2)
  1. PROVIGIL [Suspect]
     Dosage: 200 MG QD ORAL
     Route: 048
  2. TRAZODONE [Suspect]

REACTIONS (6)
  - ARRHYTHMIA [None]
  - DRUG INTERACTION [None]
  - HEPATIC FAILURE [None]
  - MULTI-ORGAN FAILURE [None]
  - PALPITATIONS [None]
  - RENAL FAILURE [None]
